FAERS Safety Report 4749692-8 (Version None)
Quarter: 2005Q3

REPORT INFORMATION
  Report Type: 
  Country: None (occurrence: None)
  Receive Date: 20050822
  Receipt Date: 20050616
  Transmission Date: 20060218
  Serious: Yes (Life-Threatening, Hospitalization)
  Sender: FDA-Public Use
  Company Number: US-ROCHE-407875

PATIENT
  Age: 10 Year
  Sex: Male

DRUGS (5)
  1. CEFTRIAXZONE [Suspect]
     Indication: RESPIRATORY DISTRESS
     Route: 042
  2. ALBUTEROL [Suspect]
     Indication: COUGH
     Dosage: TAKEN ONCE.
     Route: 055
  3. VANCOMYCIN [Suspect]
     Indication: RESPIRATORY DISTRESS
     Route: 042
  4. CEFTIN [Suspect]
     Indication: RESPIRATORY DISTRESS
     Route: 048
  5. AZITHROMYCIN [Suspect]
     Indication: RESPIRATORY DISTRESS
     Route: 048

REACTIONS (12)
  - CARDIOGENIC SHOCK [None]
  - ELECTROCARDIOGRAM ST SEGMENT DEPRESSION [None]
  - ELECTROCARDIOGRAM T WAVE INVERSION [None]
  - HAEMOLYSIS [None]
  - HAEMOLYTIC ANAEMIA [None]
  - HEART RATE DECREASED [None]
  - LOSS OF CONSCIOUSNESS [None]
  - MYOCARDIAL ISCHAEMIA [None]
  - PALLOR [None]
  - PERIPHERAL COLDNESS [None]
  - PYREXIA [None]
  - SINUS TACHYCARDIA [None]
